FAERS Safety Report 18504174 (Version 1)
Quarter: 2020Q4

REPORT INFORMATION
  Report Type: Report from Study
  Country: US (occurrence: US)
  Receive Date: 20201113
  Receipt Date: 20201113
  Transmission Date: 20210114
  Serious: Yes (Hospitalization, Other)
  Sender: FDA-Public Use
  Company Number: US-GILEAD-2020-0502857

PATIENT
  Age: 46 Year
  Sex: Female
  Weight: 88.5 kg

DRUGS (8)
  1. REMDESIVIR. [Suspect]
     Active Substance: REMDESIVIR
     Indication: COVID-19
     Dosage: 200 MG AT 20:53
     Route: 042
     Dates: start: 20200924, end: 20200924
  2. REMDESIVIR. [Suspect]
     Active Substance: REMDESIVIR
     Indication: COVID-19
     Dosage: 100 MG AT 12:14
     Route: 042
     Dates: start: 20200926, end: 20200926
  3. BLINDED LY-COV555 [Suspect]
     Active Substance: BAMLANIVIMAB
     Indication: COVID-19
     Dosage: 200 ML AT 18:10 (ABOUT 5 HOURS AFTER REMDESIVIR)
     Route: 042
     Dates: start: 20200925, end: 20200925
  4. PLACEBO [Suspect]
     Active Substance: UNSPECIFIED INGREDIENT
     Indication: COVID-19
     Dosage: 200 ML AT 18:10 (ABOUT 5 HOURS AFTER REMDESIVIR)
     Route: 042
     Dates: start: 20200925, end: 20200925
  5. LOW MOLECULAR WEIGHT HEPARIN [Concomitant]
     Active Substance: UNSPECIFIED INGREDIENT
     Indication: PROPHYLAXIS
  6. REMDESIVIR. [Suspect]
     Active Substance: REMDESIVIR
     Dosage: 100 MG AT 13:23
     Route: 042
     Dates: start: 20200925, end: 20200925
  7. LOPERAMIDE [Suspect]
     Active Substance: LOPERAMIDE
     Indication: PRODUCT USED FOR UNKNOWN INDICATION
     Route: 065
  8. OXYGEN. [Concomitant]
     Active Substance: OXYGEN
     Dosage: VIA NC (HIGHEST 5)
     Route: 055

REACTIONS (1)
  - Angioedema [Recovered/Resolved]

NARRATIVE: CASE EVENT DATE: 20200926
